FAERS Safety Report 24629272 (Version 3)
Quarter: 2024Q4

REPORT INFORMATION
  Report Type: Report from Study
  Country: US (occurrence: US)
  Receive Date: 20241118
  Receipt Date: 20241210
  Transmission Date: 20250115
  Serious: Yes (Hospitalization)
  Sender: BAXTER
  Company Number: US-BAXTER-2024BAX027603

PATIENT
  Age: 66 Year
  Sex: Male
  Weight: 93.8 kg

DRUGS (29)
  1. CYCLOPHOSPHAMIDE [Suspect]
     Active Substance: CYCLOPHOSPHAMIDE
     Indication: Diffuse large B-cell lymphoma
     Dosage: 1628 MG, EVERY 3 WEEKS
     Route: 042
     Dates: start: 20240930
  2. DOXORUBICIN [Suspect]
     Active Substance: DOXORUBICIN
     Indication: Diffuse large B-cell lymphoma
     Dosage: 109 MG, EVERY 3 WEEKS
     Route: 042
     Dates: start: 20240930
  3. PREDNISONE [Suspect]
     Active Substance: PREDNISONE
     Indication: Diffuse large B-cell lymphoma
     Dosage: 100 MG C1-6, DAY1-5, EVERY 1 DAYS, THERAPY DURATION: ONGOING
     Route: 048
     Dates: start: 20240930
  4. VINCRISTINE [Suspect]
     Active Substance: VINCRISTINE
     Indication: Diffuse large B-cell lymphoma
     Dosage: 2 MG, EVERY 3 WEEKS, THERAPY DURATION: ONGOING
     Route: 042
     Dates: start: 20240930
  5. EPCORITAMAB [Suspect]
     Active Substance: EPCORITAMAB
     Indication: Diffuse large B-cell lymphoma
     Dosage: 48 MG C1 (STEP-UP), CYCLES 2 - 4 (21-DAY CYCLE, WEEKLY DOSE), C5 - 8 (21-DAY CYCLE, EVERY 3 WEEKS) P
     Route: 058
     Dates: start: 20241001, end: 20241028
  6. EPCORITAMAB [Suspect]
     Active Substance: EPCORITAMAB
     Dosage: 48 MG C1 (STEP-UP), CYCLES 2 - 4 (21-DAY CYCLE, WEEKLY DOSE), C5 - 8 (21-DAY  CYCLE, EVERY 3 WEEKS)
     Route: 058
     Dates: start: 20241111
  7. RITUXIMAB [Suspect]
     Active Substance: RITUXIMAB
     Indication: Diffuse large B-cell lymphoma
     Dosage: 814 MG, EVERY 3 WEEKS, THERAPY DURATION: ONGOING
     Route: 042
     Dates: start: 20240930
  8. ASPIRIN [Concomitant]
     Active Substance: ASPIRIN
     Indication: Cardiovascular event prophylaxis
     Dosage: 81 MG, EVERY 1 DAYS
     Route: 065
     Dates: start: 20230718
  9. BUPROPION HYDROCHLORIDE [Concomitant]
     Active Substance: BUPROPION HYDROCHLORIDE
     Indication: Depression
     Dosage: 100 MG, EVERY 1 DAYS
     Route: 065
     Dates: start: 20240319
  10. BUPROPION HYDROCHLORIDE [Concomitant]
     Active Substance: BUPROPION HYDROCHLORIDE
     Indication: Anxiety
  11. ZYRTEC [Concomitant]
     Active Substance: CETIRIZINE HYDROCHLORIDE
     Indication: Rhinitis allergic
     Dosage: 10 MG, EVERY 1 DAYS
     Route: 065
     Dates: start: 20131010
  12. FLUTICASONE PROPIONATE [Concomitant]
     Active Substance: FLUTICASONE PROPIONATE
     Indication: Rhinitis allergic
     Dosage: 50 UG, EVERY 1 DAYS
     Route: 065
     Dates: start: 20090421
  13. VITAMINS [Concomitant]
     Active Substance: VITAMINS
     Indication: Routine health maintenance
     Dosage: 1 DOSAGE FORM, EVERY 1 DAYS
     Route: 065
     Dates: start: 20240822, end: 20240924
  14. PRAVASTATIN [Concomitant]
     Active Substance: PRAVASTATIN
     Indication: Hyperlipidaemia
     Dosage: 80 MG, EVERY 1 DAYS
     Route: 065
     Dates: start: 20200903
  15. RESTASIS [Concomitant]
     Active Substance: CYCLOSPORINE
     Indication: Dry eye
     Dosage: 0.05 %, 2/DAYS
     Route: 065
     Dates: start: 2009
  16. TAMSULOSIN [Concomitant]
     Active Substance: TAMSULOSIN
     Indication: Benign prostatic hyperplasia
     Dosage: 0.8 MG, EVERY 1 DAYS
     Route: 065
     Dates: start: 20191203, end: 20241101
  17. PAROXETINE [Concomitant]
     Active Substance: PAROXETINE
     Indication: Depression
     Dosage: 30 MG, EVERY 1 DAYS
     Route: 065
     Dates: start: 20180913
  18. PAROXETINE [Concomitant]
     Active Substance: PAROXETINE
     Indication: Anxiety
  19. DAPSONE [Concomitant]
     Active Substance: DAPSONE
     Indication: Antifungal prophylaxis
     Dosage: 100 MG, EVERY 1 DAYS
     Route: 065
     Dates: start: 20240930
  20. LEVOFLOXACIN [Concomitant]
     Active Substance: LEVOFLOXACIN
     Indication: Infection prophylaxis
     Dosage: 500 MG, EVERY 1 DAYS
     Route: 065
     Dates: start: 20240930
  21. COMPAZINE [Concomitant]
     Active Substance: PROCHLORPERAZINE MALEATE
     Indication: Prophylaxis of nausea and vomiting
     Dosage: 10 MG, AS NECESSARY
     Route: 065
     Dates: start: 20241001
  22. LIDOCAINE\PRILOCAINE [Concomitant]
     Active Substance: LIDOCAINE\PRILOCAINE
     Indication: Chemotherapy side effect prophylaxis
     Dosage: 2.5 %, AS NECESSARY
     Route: 065
     Dates: start: 20241001
  23. ONDANSETRON [Concomitant]
     Active Substance: ONDANSETRON
     Indication: Prophylaxis of nausea and vomiting
     Dosage: 8 MG, AS NECESSARY
     Route: 065
     Dates: start: 20241001
  24. BENADRYL [Concomitant]
     Active Substance: DIPHENHYDRAMINE HYDROCHLORIDE
     Indication: Antiallergic therapy
     Dosage: 50 MG, EVERY 3 WEEKS
     Route: 065
     Dates: start: 20240930
  25. DECADRON [Concomitant]
     Active Substance: DEXAMETHASONE
     Indication: Chemotherapy side effect prophylaxis
     Dosage: 12 MG, EVERY 3 WEEKS
     Route: 065
     Dates: start: 20240930
  26. EMEND [Concomitant]
     Active Substance: APREPITANT
     Indication: Prophylaxis of nausea and vomiting
     Dosage: 150 MG, EVERY 3 WEEKS
     Route: 065
     Dates: start: 20240930
  27. ALOXI [Concomitant]
     Active Substance: PALONOSETRON HYDROCHLORIDE
     Indication: Prophylaxis of nausea and vomiting
     Dosage: 0.25 MG, EVERY 3 WEEKS
     Route: 065
     Dates: start: 20240930
  28. TYLENOL [Concomitant]
     Active Substance: ACETAMINOPHEN
     Indication: Antipyresis
     Dosage: 650 MG, EVERY 3 WEEKS
     Route: 065
     Dates: start: 20240930
  29. PEGFILGRASTIM [Concomitant]
     Active Substance: PEGFILGRASTIM
     Indication: Prophylaxis
     Dosage: 6 MG, EVERY 3 WEEKS
     Route: 065
     Dates: start: 20241001

REACTIONS (1)
  - Pyrexia [Recovered/Resolved]

NARRATIVE: CASE EVENT DATE: 20241103
